FAERS Safety Report 5124666-6 (Version None)
Quarter: 2006Q4

REPORT INFORMATION
  Report Type: 
  Country: None (occurrence: None)
  Receive Date: 20061011
  Receipt Date: 20060926
  Transmission Date: 20070319
  Serious: Yes (Other)
  Sender: FDA-Public Use
  Company Number: PHFR2006GB02894

PATIENT
  Sex: Male

DRUGS (3)
  1. TEGRETOL [Suspect]
     Route: 054
  2. TEGRETOL [Suspect]
     Route: 048
  3. TEGRETOL [Suspect]

REACTIONS (4)
  - BLOOD ALBUMIN DECREASED [None]
  - DIARRHOEA [None]
  - DRUG LEVEL DECREASED [None]
  - DYSPHAGIA [None]
